FAERS Safety Report 26209763 (Version 1)
Quarter: 2025Q4

REPORT INFORMATION
  Report Type: Report from Study
  Country: JP (occurrence: JP)
  Receive Date: 20251229
  Receipt Date: 20251229
  Transmission Date: 20260118
  Serious: Yes (Other)
  Sender: UCB
  Company Number: JP-UCBJ-CD202508177UCBPHAPROD

PATIENT
  Age: 11 Year
  Weight: 41.8 kg

DRUGS (7)
  1. FENFLURAMINE HYDROCHLORIDE [Suspect]
     Active Substance: FENFLURAMINE HYDROCHLORIDE
     Indication: Severe myoclonic epilepsy of infancy
     Dosage: 0.1 MILLIGRAM/KILOGRAM, 2X/DAY (BID)
     Route: 061
  2. FENFLURAMINE HYDROCHLORIDE [Suspect]
     Active Substance: FENFLURAMINE HYDROCHLORIDE
     Dosage: 0.14 MILLIGRAM/KILOGRAM, 2X/DAY (BID)
     Route: 061
  3. TOPIRAMATE [Suspect]
     Active Substance: TOPIRAMATE
     Indication: Severe myoclonic epilepsy of infancy
     Dosage: 30 MILLIGRAM, ONCE DAILY (QD)
     Route: 061
  4. DIACOMIT [Concomitant]
     Active Substance: STIRIPENTOL
     Indication: Severe myoclonic epilepsy of infancy
     Dosage: 400 MILLIGRAM, ONCE DAILY (QD)
     Route: 061
  5. DEPAKENE [Concomitant]
     Active Substance: VALPROIC ACID
     Indication: Severe myoclonic epilepsy of infancy
     Dosage: 700 MILLIGRAM, ONCE DAILY (QD)
     Route: 061
  6. MYSTAN [Concomitant]
     Active Substance: CLOBAZAM
     Indication: Severe myoclonic epilepsy of infancy
     Dosage: 1.4 MILLIGRAM, ONCE DAILY (QD)
     Route: 061
  7. POTASSIUM BROMIDE [Concomitant]
     Active Substance: POTASSIUM BROMIDE
     Indication: Severe myoclonic epilepsy of infancy
     Dosage: 0.3 GRAM, ONCE DAILY (QD)
     Route: 061

REACTIONS (5)
  - Clonic convulsion [Recovered/Resolved]
  - Drop attacks [Not Recovered/Not Resolved]
  - Seizure [Unknown]
  - Weight increased [Recovered/Resolved]
  - Fracture [Not Recovered/Not Resolved]
